FAERS Safety Report 8394603-X (Version None)
Quarter: 2012Q2

REPORT INFORMATION
  Report Type: 
  Country: None (occurrence: None)
  Receive Date: 20120530
  Receipt Date: 20120524
  Transmission Date: 20120825
  Serious: Yes (Hospitalization, Other)
  Sender: FDA-Public Use
  Company Number: US-AMGEN-USASP2012032806

PATIENT
  Age: 75 Year
  Sex: Female

DRUGS (1)
  1. ENBREL [Suspect]
     Indication: RHEUMATOID ARTHRITIS
     Dosage: 50 MG, QWK
     Dates: start: 20060801

REACTIONS (15)
  - AORTIC ANEURYSM [None]
  - THIRST DECREASED [None]
  - FALL [None]
  - PAIN [None]
  - DECREASED APPETITE [None]
  - MUSCULOSKELETAL STIFFNESS [None]
  - RHEUMATOID ARTHRITIS [None]
  - ARTERIAL STENT INSERTION [None]
  - HUMERUS FRACTURE [None]
  - DEHYDRATION [None]
  - MOBILITY DECREASED [None]
  - PYREXIA [None]
  - NAUSEA [None]
  - INFLUENZA [None]
  - REHABILITATION THERAPY [None]
